FAERS Safety Report 14993322 (Version 2)
Quarter: 2018Q3

REPORT INFORMATION
  Report Type: Spontaneous
  Country: GB (occurrence: GB)
  Receive Date: 20180610
  Receipt Date: 20180702
  Transmission Date: 20181010
  Serious: Yes (Other)
  Sender: FDA-Public Use
  Company Number: PHHY2018GB018439

PATIENT
  Age: 55 Year
  Sex: Female

DRUGS (2)
  1. METHOTREXATE. [Suspect]
     Active Substance: METHOTREXATE
     Indication: PRODUCT USED FOR UNKNOWN INDICATION
     Dosage: UNK
     Route: 065
  2. SIMPONI [Suspect]
     Active Substance: GOLIMUMAB
     Indication: PRODUCT USED FOR UNKNOWN INDICATION
     Dosage: 50 MG, QMO
     Route: 058

REACTIONS (7)
  - Fatigue [Unknown]
  - Eye infection [Unknown]
  - Ankle fracture [Unknown]
  - Fall [Unknown]
  - Eyelid infection [Unknown]
  - Hot flush [Unknown]
  - Arthritis [Unknown]

NARRATIVE: CASE EVENT DATE: 2018
